FAERS Safety Report 7094652-8 (Version None)
Quarter: 2010Q4

REPORT INFORMATION
  Report Type: 
  Country: None (occurrence: None)
  Receive Date: 20101110
  Receipt Date: 20101028
  Transmission Date: 20110411
  Serious: Yes (Hospitalization)
  Sender: FDA-Public Use
  Company Number: US-MYLANLABS-2010S1020213

PATIENT
  Age: 48 Year
  Sex: Male

DRUGS (11)
  1. GLIPIZIDE [Suspect]
     Route: 065
  2. OCTREOTIDE ACETATE [Suspect]
     Indication: HYPOGLYCAEMIA
     Route: 058
  3. ATENOLOL [Concomitant]
     Route: 065
  4. WARFARIN [Concomitant]
     Route: 065
  5. AMIODARONE [Concomitant]
     Route: 065
  6. ESOMEPRAZOLE [Concomitant]
     Route: 065
  7. FOLIC ACID [Concomitant]
     Route: 065
  8. CALCITRIOL [Concomitant]
     Route: 065
  9. ALLOPURINOL [Concomitant]
     Route: 065
  10. SEVELAMER [Concomitant]
     Route: 065
  11. GLUCOSE [Concomitant]
     Indication: HYPOGLYCAEMIA
     Route: 065

REACTIONS (4)
  - FLUID OVERLOAD [None]
  - HAEMODIALYSIS [None]
  - HYPERKALAEMIA [None]
  - HYPOGLYCAEMIA [None]
